FAERS Safety Report 10541119 (Version 1)
Quarter: 2014Q4

REPORT INFORMATION
  Report Type: Spontaneous
  Country: US (occurrence: None)
  Receive Date: 20141010
  Receipt Date: 20141010
  Transmission Date: 20150529
  Serious: Yes (Other)
  Sender: FDA-Public Use
  Company Number: 163-POMAL-14061954

PATIENT
  Age: 82 Year
  Sex: Female
  Weight: 54.43 kg

DRUGS (14)
  1. DEXAMETHASONE (DEXAMETHASONE) [Concomitant]
     Active Substance: DEXAMETHASONE
  2. KLOR-CON (POTASSIUM CHLORIDE) [Concomitant]
  3. CALCIUM + VITAMIN D (LEKOVIT CA) [Concomitant]
     Active Substance: CALCIUM\VITAMIN D
  4. CRANBERRY (OTHER THERAPEUTIC PRODUCTS) [Concomitant]
  5. VITAMIN B6 [Concomitant]
     Active Substance: PYRIDOXINE HYDROCHLORIDE
  6. NORVASC (AMLODIPINE BESYLATE) [Concomitant]
  7. VITAMIN B-12 (CYANOCOBALAMIN) [Concomitant]
  8. POMALYST [Suspect]
     Active Substance: POMALIDOMIDE
     Indication: PLASMA CELL MYELOMA
     Dosage: 21 IN 28 D
     Route: 048
     Dates: start: 201405
  9. PLAVIX (CLOPIDOGREL BISULFATE) [Concomitant]
  10. MULTIPLE VITAMINS (MULTIPLE VITAMINS) [Concomitant]
  11. ASPIRIN (ACETYLSALICYLIC ACID) [Concomitant]
     Active Substance: ASPIRIN
  12. FOLIC ACID (FOLIC ACID) [Concomitant]
     Active Substance: FOLIC ACID
  13. CYTOMEL (LIOTHYRONINE SODIUM) [Concomitant]
  14. PROBIOTIC (BIGIDOBACTERIUM LACTIS) [Concomitant]

REACTIONS (8)
  - Swelling [None]
  - Balance disorder [None]
  - Rash [None]
  - Herpes zoster [None]
  - Pain [None]
  - Hypoaesthesia [None]
  - Immune system disorder [None]
  - Feeling abnormal [None]

NARRATIVE: CASE EVENT DATE: 20140531
